FAERS Safety Report 10021167 (Version 2)
Quarter: 2014Q1

REPORT INFORMATION
  Report Type: Spontaneous
  Country: US (occurrence: US)
  Receive Date: 20140319
  Receipt Date: 20140319
  Transmission Date: 20141002
  Serious: No
  Sender: FDA-Public Use
  Company Number: US-PFIZER INC-2014033744

PATIENT
  Age: 53 Year
  Sex: Female
  Weight: 81.63 kg

DRUGS (2)
  1. LEVOTHYROXINE SODIUM [Suspect]
     Indication: HYPOTHYROIDISM
     Dosage: UNK
     Dates: start: 2013
  2. SYNTHROID [Suspect]
     Indication: HYPOTHYROIDISM
     Dosage: UNK
     Dates: start: 2013

REACTIONS (3)
  - Weight increased [Unknown]
  - Feeling abnormal [Unknown]
  - Blood thyroid stimulating hormone increased [Unknown]
